FAERS Safety Report 4555167-1 (Version None)
Quarter: 2005Q1

REPORT INFORMATION
  Report Type: 
  Country: None (occurrence: None)
  Receive Date: 20041228
  Receipt Date: 20041102
  Transmission Date: 20050727
  Serious: Yes (Other)
  Sender: FDA-Public Use
  Company Number: PHEH2004US07398

PATIENT
  Age: 64 Year
  Sex: Male
  Weight: 86.6 kg

DRUGS (9)
  1. AREDIA [Suspect]
     Indication: MULTIPLE MYELOMA
     Dosage: 90 MG, QMO, INTRAVENOUS
     Route: 042
     Dates: start: 20020520, end: 20040601
  2. DECADRON [Concomitant]
  3. ADVIL [Concomitant]
  4. SYNTHROID [Concomitant]
  5. MINOCYCLINE HCL [Concomitant]
  6. BOTOX (BOTULINUM TOXIN TYPE A) [Concomitant]
  7. AMBIEN [Concomitant]
  8. ATIVAN [Concomitant]
  9. METROCREAM [Concomitant]

REACTIONS (6)
  - DENTAL CARIES [None]
  - ENDODONTIC PROCEDURE [None]
  - MYALGIA [None]
  - MYOSITIS [None]
  - OSTEONECROSIS [None]
  - PAIN IN JAW [None]
